FAERS Safety Report 11676065 (Version 1)
Quarter: 2015Q4

REPORT INFORMATION
  Report Type: Spontaneous
  Country: US (occurrence: US)
  Receive Date: 20151027
  Receipt Date: 20151027
  Transmission Date: 20160304
  Serious: No
  Sender: FDA-Public Use
  Company Number: US-ELI_LILLY_AND_COMPANY-US201008002930

PATIENT
  Sex: Female

DRUGS (22)
  1. PAXIL [Concomitant]
     Active Substance: PAROXETINE HYDROCHLORIDE
     Dosage: 20 MG, UNK
  2. FORTEO [Suspect]
     Active Substance: TERIPARATIDE
     Dosage: 20 UG, DAILY (1/D)
  3. FORTEO [Suspect]
     Active Substance: TERIPARATIDE
     Indication: OSTEOPOROSIS
     Dosage: 20 UG, DAILY (1/D)
  4. LISINOPRIL. [Concomitant]
     Active Substance: LISINOPRIL
     Dosage: 5 MG, UNK
  5. VITAMIN D [Concomitant]
     Active Substance: CHOLECALCIFEROL
     Dosage: 2000 D/F, UNK
  6. MEGACE [Concomitant]
     Active Substance: MEGESTROL ACETATE
  7. PENTOXIFYLLINE. [Concomitant]
     Active Substance: PENTOXIFYLLINE
     Dosage: 400 MG, 3/D
  8. TRENTAL [Concomitant]
     Active Substance: PENTOXIFYLLINE
  9. PLENDIL [Concomitant]
     Active Substance: FELODIPINE
  10. FELODIN [Concomitant]
     Dosage: 10 MG, UNK
  11. MULTIVITAMIN [Concomitant]
     Active Substance: VITAMINS
  12. CELEBREX [Concomitant]
     Active Substance: CELECOXIB
     Indication: PAIN
     Dosage: 200 MG, DAILY (1/D)
  13. MINIPRESS [Concomitant]
     Active Substance: PRAZOSIN HYDROCHLORIDE
  14. ASPIRIN. [Concomitant]
     Active Substance: ASPIRIN
     Dosage: 325 MG, DAILY (1/D)
  15. CALCIUM [Concomitant]
     Active Substance: CALCIUM
  16. RYTHMOL [Concomitant]
     Active Substance: PROPAFENONE HYDROCHLORIDE
     Dosage: 150 MG, 3/D
  17. MOTRIN [Concomitant]
     Active Substance: IBUPROFEN
     Dosage: 600 MG, AS NEEDED
  18. OXYGEN. [Concomitant]
     Active Substance: OXYGEN
     Dosage: 2 LITER, EACH EVENING
  19. OMEPRAZOLE. [Concomitant]
     Active Substance: OMEPRAZOLE
     Dosage: 20 MG, UNK
  20. PREDNISONE. [Concomitant]
     Active Substance: PREDNISONE
     Dosage: 9 MG, UNK
  21. ARAVA [Concomitant]
     Active Substance: LEFLUNOMIDE
  22. PRAZOSIN [Concomitant]
     Active Substance: PRAZOSIN
     Dosage: 1 MG, UNK

REACTIONS (1)
  - Stress fracture [Recovered/Resolved]
